FAERS Safety Report 9731372 (Version 1)
Quarter: 2013Q4

REPORT INFORMATION
  Report Type: Spontaneous
  Country: US (occurrence: US)
  Receive Date: 20131203
  Receipt Date: 20131203
  Transmission Date: 20140711
  Serious: No
  Sender: FDA-Public Use
  Company Number: US-NOVEN-13US007792

PATIENT
  Age: 56 Year
  Sex: Female

DRUGS (6)
  1. FENTANYL [Suspect]
     Indication: PAIN
     Dosage: 100 UG/HR, UNK
     Route: 062
     Dates: start: 201309, end: 201309
  2. LEXAPRO [Concomitant]
     Indication: DEPRESSION
     Dosage: 15 MG, QD
     Route: 048
  3. PEPCID                             /00706001/ [Concomitant]
     Indication: GASTROOESOPHAGEAL REFLUX DISEASE
     Dosage: 10 MG, UNK
     Route: 046
  4. TRANSENE [Concomitant]
     Dosage: 2.75 MG, UNK
     Route: 048
  5. BONIVA [Concomitant]
     Dosage: UNK
     Route: 048
  6. FOLIC ACID [Concomitant]
     Dosage: UNK
     Route: 048

REACTIONS (4)
  - Application site haemorrhage [Recovered/Resolved]
  - Application site irritation [Recovered/Resolved]
  - Inadequate analgesia [Recovered/Resolved]
  - Product quality issue [Recovered/Resolved]
